FAERS Safety Report 4561616-5 (Version None)
Quarter: 2005Q1

REPORT INFORMATION
  Report Type: 
  Country: None (occurrence: None)
  Receive Date: 20050126
  Receipt Date: 20050124
  Transmission Date: 20050727
  Serious: Yes (Hospitalization)
  Sender: FDA-Public Use
  Company Number: US-GLAXOSMITHKLINE-A0541965A

PATIENT
  Age: 16 Year
  Sex: Female

DRUGS (7)
  1. WELLBUTRIN XL [Suspect]
     Indication: DEPRESSION
     Dosage: 150MG PER DAY
     Route: 048
     Dates: start: 20010101
  2. VITAMIN B COMPLEX CAP [Suspect]
  3. LAMICTAL [Concomitant]
  4. SEROQUEL [Concomitant]
  5. PROZAC [Concomitant]
  6. STRATTERA [Concomitant]
  7. MARIJUANA [Concomitant]

REACTIONS (4)
  - EPISTAXIS [None]
  - ERYTHEMA [None]
  - INTENTIONAL MISUSE [None]
  - OVERDOSE [None]
